FAERS Safety Report 9230780 (Version 60)
Quarter: 2018Q2

REPORT INFORMATION
  Report Type: Report from Study
  Country: CA (occurrence: CA)
  Receive Date: 20130415
  Receipt Date: 20180525
  Transmission Date: 20180711
  Serious: Yes (Other)
  Sender: FDA-Public Use
  Company Number: CA-ROCHE-1108879

PATIENT
  Age: 76 Year
  Sex: Female
  Weight: 98 kg

DRUGS (25)
  1. SYMBICORT [Concomitant]
     Active Substance: BUDESONIDE\FORMOTEROL FUMARATE DIHYDRATE
     Dosage: INHALER
     Route: 055
  2. PANTOLOC [Concomitant]
     Active Substance: PANTOPRAZOLE SODIUM
  3. ACTEMRA [Suspect]
     Active Substance: TOCILIZUMAB
     Dosage: INFUSION 81
     Route: 042
     Dates: start: 20170523
  4. NAPROSYN [Suspect]
     Active Substance: NAPROXEN
     Indication: PAIN
     Route: 065
     Dates: end: 20130312
  5. VITAMIN B12 [Concomitant]
     Active Substance: CYANOCOBALAMIN
     Route: 058
  6. ELAVIL [Concomitant]
     Active Substance: AMITRIPTYLINE HYDROCHLORIDE
  7. PANTOPRAZOLE [Concomitant]
     Active Substance: PANTOPRAZOLE
  8. CITALOPRAM [Concomitant]
     Active Substance: CITALOPRAM HYDROBROMIDE
     Indication: PAIN
  9. ACTEMRA [Suspect]
     Active Substance: TOCILIZUMAB
     Indication: RHEUMATOID ARTHRITIS
     Dosage: FIRST RPAP DOSE
     Route: 042
     Dates: start: 20101122
  10. ACTEMRA [Suspect]
     Active Substance: TOCILIZUMAB
     Route: 042
     Dates: start: 2008
  11. TYLENOL [Concomitant]
     Active Substance: ACETAMINOPHEN
     Dosage: (AS NEEDED)
     Route: 065
  12. METFORMIN [Concomitant]
     Active Substance: METFORMIN HYDROCHLORIDE
  13. AMITRIPTYLINE [Concomitant]
     Active Substance: AMITRIPTYLINE
  14. ACTEMRA [Suspect]
     Active Substance: TOCILIZUMAB
     Route: 042
     Dates: start: 20140930
  15. ASPIRIN. [Suspect]
     Active Substance: ASPIRIN
     Indication: PRODUCT USED FOR UNKNOWN INDICATION
     Route: 065
     Dates: end: 20130312
  16. FOLIC ACID. [Concomitant]
     Active Substance: FOLIC ACID
     Route: 065
  17. ALLOPURINOL. [Concomitant]
     Active Substance: ALLOPURINOL
     Indication: GOUT
  18. OXYCONTIN [Suspect]
     Active Substance: OXYCODONE HYDROCHLORIDE
     Indication: PAIN
     Route: 048
  19. METHOTREXATE. [Concomitant]
     Active Substance: METHOTREXATE
     Route: 048
  20. BISOPROLOL [Concomitant]
     Active Substance: BISOPROLOL
     Route: 065
  21. ACTEMRA [Suspect]
     Active Substance: TOCILIZUMAB
     Route: 042
     Dates: start: 20170619
  22. PREMARIN [Concomitant]
     Active Substance: ESTROGENS, CONJUGATED
     Dosage: AS REQUIRED
     Route: 065
  23. SYNTHROID [Concomitant]
     Active Substance: LEVOTHYROXINE SODIUM
     Route: 065
  24. LASIX [Concomitant]
     Active Substance: FUROSEMIDE
     Dosage: (WATER PILL)
     Route: 065
  25. FUROSEMIDE. [Concomitant]
     Active Substance: FUROSEMIDE

REACTIONS (66)
  - Skin depigmentation [Not Recovered/Not Resolved]
  - Oxygen saturation decreased [Unknown]
  - Pain in extremity [Not Recovered/Not Resolved]
  - Exostosis [Not Recovered/Not Resolved]
  - Body temperature decreased [Unknown]
  - Urinary tract infection [Unknown]
  - Blood iron decreased [Unknown]
  - Gastric ulcer [Not Recovered/Not Resolved]
  - Pain [Unknown]
  - Pulpitis dental [Not Recovered/Not Resolved]
  - Tooth disorder [Unknown]
  - Nasopharyngitis [Unknown]
  - Injection site mass [Not Recovered/Not Resolved]
  - Asthenia [Unknown]
  - Sinusitis [Not Recovered/Not Resolved]
  - Wound infection [Recovered/Resolved]
  - Urinary tract infection [Recovered/Resolved]
  - Contusion [Unknown]
  - Blood pressure diastolic decreased [Unknown]
  - Bronchitis [Recovered/Resolved]
  - Blood pressure diastolic abnormal [Unknown]
  - Osteoarthritis [Unknown]
  - Skin disorder [Unknown]
  - Arthralgia [Not Recovered/Not Resolved]
  - Nausea [Not Recovered/Not Resolved]
  - Vomiting [Not Recovered/Not Resolved]
  - Complication associated with device [Unknown]
  - Mass [Unknown]
  - Cystitis [Unknown]
  - Ocular hyperaemia [Not Recovered/Not Resolved]
  - Oxygen saturation decreased [Unknown]
  - Dizziness [Not Recovered/Not Resolved]
  - Bone contusion [Unknown]
  - Haemoptysis [Unknown]
  - Tooth extraction [Recovered/Resolved]
  - Bronchitis [Not Recovered/Not Resolved]
  - Tooth loss [Unknown]
  - Arthralgia [Unknown]
  - Back pain [Unknown]
  - Injection site induration [Recovered/Resolved]
  - Osteoporosis [Unknown]
  - Folliculitis [Unknown]
  - Eye irritation [Not Recovered/Not Resolved]
  - Back pain [Not Recovered/Not Resolved]
  - Blood pressure systolic decreased [Unknown]
  - Laceration [Recovering/Resolving]
  - Diverticulitis [Unknown]
  - Haemorrhoids [Unknown]
  - Fall [Unknown]
  - Cough [Not Recovered/Not Resolved]
  - Rotator cuff syndrome [Unknown]
  - Skin abrasion [Unknown]
  - Hypotension [Unknown]
  - Joint swelling [Not Recovered/Not Resolved]
  - Balance disorder [Recovered/Resolved]
  - Blood pressure fluctuation [Recovered/Resolved]
  - Atrial fibrillation [Not Recovered/Not Resolved]
  - Dizziness [Recovering/Resolving]
  - Gastrooesophageal reflux disease [Not Recovered/Not Resolved]
  - Fall [Unknown]
  - Infusion related reaction [Unknown]
  - Body temperature increased [Unknown]
  - Wrist deformity [Not Recovered/Not Resolved]
  - Rectal haemorrhage [Recovered/Resolved]
  - Anaemia [Unknown]
  - Blood pressure diastolic decreased [Unknown]

NARRATIVE: CASE EVENT DATE: 2012
